FAERS Safety Report 18760769 (Version 1)
Quarter: 2021Q1

REPORT INFORMATION
  Report Type: Spontaneous
  Country: US (occurrence: US)
  Receive Date: 20210119
  Receipt Date: 20210119
  Transmission Date: 20210419
  Serious: No
  Sender: FDA-Public Use
  Company Number: US-PFIZER INC-2021034263

PATIENT
  Age: 23 Year
  Sex: Female

DRUGS (5)
  1. APRISO [Concomitant]
     Active Substance: MESALAMINE
     Dosage: UNK 0.375G CAP ER 24H
  2. IRON [Concomitant]
     Active Substance: IRON
     Dosage: UNK (18 MG)
  3. XELJANZ [Suspect]
     Active Substance: TOFACITINIB CITRATE
     Indication: COLITIS ULCERATIVE
     Dosage: 10 MG, 2X/DAY (TABS 60^S)
     Route: 048
     Dates: start: 202003
  4. PEPCID [Concomitant]
     Active Substance: FAMOTIDINE
     Dosage: UNK (40 MG )
  5. PREDNISONE. [Concomitant]
     Active Substance: PREDNISONE
     Dosage: UNK (10 MG)

REACTIONS (1)
  - Rash [Recovered/Resolved]
